FAERS Safety Report 4881953-4 (Version None)
Quarter: 2006Q1

REPORT INFORMATION
  Report Type: 
  Country: None (occurrence: None)
  Receive Date: 20060117
  Receipt Date: 20060113
  Transmission Date: 20060701
  Serious: Yes (Other)
  Sender: FDA-Public Use
  Company Number: US-GLAXOSMITHKLINE-A0589210A

PATIENT
  Age: 87 Year
  Sex: Male

DRUGS (7)
  1. COREG [Suspect]
     Dosage: 6.25MG TWICE PER DAY
     Route: 048
  2. ATACAND [Concomitant]
  3. SPIRONOLACTONE [Concomitant]
  4. HYDROCHLOROTHIAZIDE [Concomitant]
  5. LOVASTATIN [Concomitant]
  6. ACIPHEX [Concomitant]
  7. ALLOPURINOL [Concomitant]

REACTIONS (3)
  - AORTIC ANEURYSM [None]
  - COUGH [None]
  - PRODUCTIVE COUGH [None]
